FAERS Safety Report 9248087 (Version 2)
Quarter: 2013Q2

REPORT INFORMATION
  Report Type: Spontaneous
  Country: US (occurrence: US)
  Receive Date: 20130423
  Receipt Date: 20130502
  Transmission Date: 20140414
  Serious: No
  Sender: FDA-Public Use
  Company Number: US-PFIZER INC-2013122359

PATIENT
  Age: 83 Year
  Sex: Male
  Weight: 73 kg

DRUGS (8)
  1. NEURONTIN [Suspect]
     Indication: AGGRESSION
     Dosage: 600 MG, 1X/DAY
  2. NEURONTIN [Suspect]
     Indication: INSOMNIA
  3. CALTRATE [Suspect]
     Dosage: 600 MG, 1X/DAY
  4. ASPIRIN [Suspect]
     Indication: ANTICOAGULANT THERAPY
     Dosage: 81 MG, 1X/DAY
  5. CYMBALTA [Suspect]
     Indication: ANTIDEPRESSANT THERAPY
     Dosage: 60 MG, 1X/DAY
  6. PRAVACHOL [Suspect]
     Indication: BLOOD CHOLESTEROL INCREASED
     Dosage: 40 MG, 1X/DAY
  7. FLOMAX [Suspect]
     Indication: MICTURITION DISORDER
     Dosage: 0.8 MG, 1X/DAY
  8. VITAMIN D [Suspect]
     Indication: ROUTINE HEALTH MAINTENANCE
     Dosage: 5000 IU, 1X/DAY

REACTIONS (4)
  - Fatigue [Unknown]
  - Somnolence [Unknown]
  - Vitamin B12 decreased [Unknown]
  - Off label use [Unknown]
